FAERS Safety Report 24266319 (Version 1)
Quarter: 2024Q3

REPORT INFORMATION
  Report Type: Spontaneous
  Country: US (occurrence: US)
  Receive Date: 20240830
  Receipt Date: 20240830
  Transmission Date: 20241017
  Serious: No
  Sender: BRISTOL MYERS SQUIBB
  Company Number: US-BRISTOL-MYERS SQUIBB COMPANY-2024-137552

PATIENT
  Age: 77 Year
  Sex: Female
  Weight: 76.2 kg

DRUGS (1)
  1. REVLIMID [Suspect]
     Active Substance: LENALIDOMIDE
     Indication: Plasma cell myeloma
     Dosage: FREQ: 1 CAPSULE MONDAY, WEDNESDAY, AND FRIDAY FOR 3 WEEKS ON, 1 WEEK OFF.
     Route: 048

REACTIONS (2)
  - Illness [Recovered/Resolved]
  - Off label use [Recovered/Resolved]
